FAERS Safety Report 4884855-2 (Version None)
Quarter: 2006Q1

REPORT INFORMATION
  Report Type: 
  Country: None (occurrence: None)
  Receive Date: 20060119
  Receipt Date: 20050810
  Transmission Date: 20060701
  Serious: Yes (Hospitalization)
  Sender: FDA-Public Use
  Company Number: JP-GLAXOSMITHKLINE-B0390483A

PATIENT
  Age: 60 Year
  Sex: Female

DRUGS (5)
  1. PAXIL [Suspect]
     Route: 048
     Dates: start: 20050608, end: 20050802
  2. EUGLUCON [Concomitant]
     Indication: DIABETES MELLITUS
     Route: 048
     Dates: end: 20050727
  3. BASEN [Concomitant]
     Indication: DIABETES MELLITUS
     Route: 048
     Dates: end: 20050727
  4. CYANOCOBALAMIN [Concomitant]
     Indication: DIABETES MELLITUS
     Route: 048
     Dates: end: 20050727
  5. FLURBIPROFEN [Concomitant]

REACTIONS (5)
  - AUTONOMIC NERVOUS SYSTEM IMBALANCE [None]
  - DIZZINESS [None]
  - HYPERGLYCAEMIA [None]
  - MALAISE [None]
  - NAUSEA [None]
